FAERS Safety Report 10922261 (Version 1)
Quarter: 2015Q1

REPORT INFORMATION
  Report Type: Spontaneous
  Country: CA (occurrence: CA)
  Receive Date: 20150317
  Receipt Date: 20150317
  Transmission Date: 20150721
  Serious: Yes (Other)
  Sender: FDA-Public Use
  Company Number: CA-ASTELLAS-2015US008020

PATIENT
  Age: 29 Year

DRUGS (3)
  1. ADVAGRAF [Suspect]
     Active Substance: TACROLIMUS
     Dosage: 7 MG, DAILY
     Route: 065
  2. ADVAGRAF [Suspect]
     Active Substance: TACROLIMUS
     Indication: PRODUCT USED FOR UNKNOWN INDICATION
     Dosage: 8 MG, DAILY
     Route: 065
  3. ADVAGRAF [Suspect]
     Active Substance: TACROLIMUS
     Dosage: 6 MG, DAILY
     Route: 065

REACTIONS (4)
  - Tenderness [Not Recovered/Not Resolved]
  - Pain in extremity [Not Recovered/Not Resolved]
  - Gait disturbance [Not Recovered/Not Resolved]
  - Bone marrow oedema [Not Recovered/Not Resolved]

NARRATIVE: CASE EVENT DATE: 201410
